FAERS Safety Report 7535436 (Version 3)
Quarter: 2016Q3

REPORT INFORMATION
  Report Type: Spontaneous
  Country: US (occurrence: US)
  Receive Date: 20100810
  Receipt Date: 20160729
  Transmission Date: 20161109
  Serious: Yes (Hospitalization, Other)
  Sender: FDA-Public Use
  Company Number: US-ELI_LILLY_AND_COMPANY-US201007007291

PATIENT
  Sex: Female

DRUGS (9)
  1. IBUPROFEN. [Concomitant]
     Active Substance: IBUPROFEN
  2. RANITIDINE. [Concomitant]
     Active Substance: RANITIDINE
  3. ZYPREXA [Suspect]
     Active Substance: OLANZAPINE
     Indication: SCHIZOPHRENIA
     Dosage: 10 MG, DAILY (1/D)
  4. VICODIN [Concomitant]
     Active Substance: ACETAMINOPHEN\HYDROCODONE BITARTRATE
  5. ZYPREXA [Suspect]
     Active Substance: OLANZAPINE
     Dosage: 15 MG, DAILY (1/D)
  6. ZYPREXA [Suspect]
     Active Substance: OLANZAPINE
     Dosage: 20 MG, QD
     Route: 048
  7. ALBUTEROL                          /00139501/ [Concomitant]
     Active Substance: ALBUTEROL
  8. IRON [Concomitant]
     Active Substance: IRON
  9. ZYPREXA [Suspect]
     Active Substance: OLANZAPINE
     Dosage: UNK, UNKNOWN
     Route: 065

REACTIONS (21)
  - Brain neoplasm [Unknown]
  - Menorrhagia [Recovered/Resolved]
  - Peripheral swelling [Unknown]
  - Weight decreased [Unknown]
  - Blister [Unknown]
  - Vision blurred [Unknown]
  - Asthenia [Unknown]
  - Abasia [Unknown]
  - Pain [Unknown]
  - Drug dose omission [Unknown]
  - Pollakiuria [Unknown]
  - Weight increased [Unknown]
  - Blood glucose increased [Recovered/Resolved]
  - Insomnia [Unknown]
  - Headache [Unknown]
  - Diabetes mellitus [Not Recovered/Not Resolved]
  - Dizziness [Unknown]
  - Dysmenorrhoea [Recovered/Resolved]
  - Feeding disorder [Unknown]
  - Thirst [Unknown]
  - Dysuria [Unknown]
